FAERS Safety Report 7550294-9 (Version None)
Quarter: 2011Q2

REPORT INFORMATION
  Report Type: 
  Country: None (occurrence: None)
  Receive Date: 20110615
  Receipt Date: 20110601
  Transmission Date: 20111010
  Serious: Yes (Life-Threatening, Hospitalization, Congenital Anomaly, Other)
  Sender: FDA-Public Use
  Company Number: DE-ELI_LILLY_AND_COMPANY-DE201106001118

PATIENT
  Weight: 2.5 kg

DRUGS (6)
  1. FOLIC ACID [Concomitant]
     Dosage: 0.4 MG, QD
     Route: 064
  2. DOXEPIN [Concomitant]
     Indication: DEPRESSION
     Dosage: 125 MG, QD
     Route: 064
     Dates: start: 20100429, end: 20110112
  3. FOLIC ACID [Concomitant]
     Indication: PROPHYLAXIS OF NEURAL TUBE DEFECT
     Dosage: 0.4 MG, QD
     Route: 064
  4. FLUOXETINE [Suspect]
     Dosage: 60 MG, QD
     Route: 064
     Dates: start: 20100429, end: 20110112
  5. DOXEPIN [Concomitant]
     Dosage: 125 MG, QD
     Route: 064
     Dates: start: 20100429, end: 20110112
  6. FLUOXETINE [Suspect]
     Indication: BULIMIA NERVOSA
     Dosage: 60 MG, QD
     Route: 064
     Dates: start: 20100429, end: 20110112

REACTIONS (8)
  - EXTRAPYRAMIDAL DISORDER [None]
  - PREMATURE BABY [None]
  - FOETAL HEART RATE DECELERATION [None]
  - DRUG EXPOSURE DURING PREGNANCY [None]
  - FOETAL DISTRESS SYNDROME [None]
  - HAEMANGIOMA CONGENITAL [None]
  - FEELING JITTERY [None]
  - DRUG WITHDRAWAL SYNDROME NEONATAL [None]
